FAERS Safety Report 13628140 (Version 1)
Quarter: 2017Q2

REPORT INFORMATION
  Report Type: Spontaneous
  Country: US (occurrence: US)
  Receive Date: 20170608
  Receipt Date: 20170608
  Transmission Date: 20170830
  Serious: No
  Sender: FDA-Public Use
  Company Number: US-PERRIGO-17US001618

PATIENT
  Age: 57 Year
  Sex: Male
  Weight: 92.97 kg

DRUGS (2)
  1. MINOXIDIL. [Suspect]
     Active Substance: MINOXIDIL
     Indication: ALOPECIA
     Dosage: 1/2 CAPFUL, QD
     Route: 061
     Dates: start: 20170211, end: 20170212
  2. VITAMIN D                          /00107901/ [Concomitant]
     Active Substance: ERGOCALCIFEROL
     Indication: SUPPLEMENTATION THERAPY
     Dosage: UNK
     Route: 065
     Dates: start: 2012

REACTIONS (6)
  - Headache [Recovering/Resolving]
  - Blood pressure increased [Unknown]
  - Syncope [Recovered/Resolved]
  - Inappropriate schedule of drug administration [Recovered/Resolved]
  - Skin discolouration [Recovering/Resolving]
  - Application site erythema [Recovered/Resolved]

NARRATIVE: CASE EVENT DATE: 20170211
